FAERS Safety Report 17814984 (Version 1)
Quarter: 2020Q2

REPORT INFORMATION
  Report Type: Other
  Country: BG (occurrence: BG)
  Receive Date: 20200522
  Receipt Date: 20200522
  Transmission Date: 20200714
  Serious: Yes (Death)
  Sender: FDA-Public Use
  Company Number: BG-B.BRAUN MEDICAL INC.-2084101

PATIENT
  Age: 44 Year
  Sex: Male

DRUGS (3)
  1. THIRD GENERATION CEPHALOSPORIN [Concomitant]
  2. VANCOMYCIN HYDROCHLORIDE. [Concomitant]
     Active Substance: VANCOMYCIN HYDROCHLORIDE
  3. METRONIDAZOLE INJECTION USP (5 MG/ML) IN PAB? PLASTIC CONTAINER (NDA 0 [Suspect]
     Active Substance: METRONIDAZOLE
     Indication: INFECTION

REACTIONS (1)
  - Drug ineffective [None]
